FAERS Safety Report 7440011-5 (Version None)
Quarter: 2011Q2

REPORT INFORMATION
  Report Type: 
  Country: None (occurrence: None)
  Receive Date: 20110427
  Receipt Date: 20110422
  Transmission Date: 20111010
  Serious: Yes (Death)
  Sender: FDA-Public Use
  Company Number: PHHO2010CN12235

PATIENT
  Sex: Male
  Weight: 66 kg

DRUGS (1)
  1. EVEROLIMUS [Suspect]
     Indication: METASTATIC RENAL CELL CARCINOMA
     Dosage: 10 MG, QD
     Route: 048
     Dates: start: 20100716, end: 20100808

REACTIONS (4)
  - COMA HEPATIC [None]
  - HEPATIC FAILURE [None]
  - NEOPLASM MALIGNANT [None]
  - MENTAL DISORDER [None]
